FAERS Safety Report 16928184 (Version 1)
Quarter: 2019Q4

REPORT INFORMATION
  Report Type: Spontaneous
  Country: US (occurrence: US)
  Receive Date: 20191017
  Receipt Date: 20191017
  Transmission Date: 20200122
  Serious: No
  Sender: FDA-Public Use
  Company Number: US-ELI_LILLY_AND_COMPANY-US201910004609

PATIENT
  Sex: Male

DRUGS (5)
  1. HUMALOG [Suspect]
     Active Substance: INSULIN LISPRO
     Indication: TYPE 1 DIABETES MELLITUS
     Dosage: UNK, TID
     Route: 058
  2. TRULICITY [Suspect]
     Active Substance: DULAGLUTIDE
     Indication: TYPE 1 DIABETES MELLITUS
     Dosage: 0.75 MG, WEEKLY (1/W)
     Route: 058
  3. TRULICITY [Suspect]
     Active Substance: DULAGLUTIDE
     Dosage: 0.75 MG, WEEKLY (1/W)
     Route: 058
  4. HUMALOG [Suspect]
     Active Substance: INSULIN LISPRO
     Dosage: UNK, TID
     Route: 058
  5. TOUJEO [Concomitant]
     Active Substance: INSULIN GLARGINE
     Indication: TYPE 1 DIABETES MELLITUS
     Dosage: 70 U, DAILY

REACTIONS (8)
  - Diabetes mellitus inadequate control [Unknown]
  - Decreased appetite [Unknown]
  - Abdominal pain [Recovered/Resolved]
  - Bowel movement irregularity [Unknown]
  - Off label use [Unknown]
  - Drug ineffective [Unknown]
  - Blood glucose increased [Recovered/Resolved]
  - Gastric disorder [Unknown]
